FAERS Safety Report 6095328-6 (Version None)
Quarter: 2009Q1

REPORT INFORMATION
  Report Type: 
  Country: None (occurrence: None)
  Receive Date: 20090227
  Receipt Date: 20080404
  Transmission Date: 20090719
  Serious: No
  Sender: FDA-Public Use
  Company Number: A0714315A

PATIENT
  Age: 49 Year
  Sex: Female
  Weight: 136 kg

DRUGS (6)
  1. LAMICTAL [Suspect]
     Indication: BIPOLAR DISORDER
     Route: 048
     Dates: start: 20071101, end: 20080101
  2. ORAL CONTRACEPTIVES [Concomitant]
  3. LEVOTHYROXINE SODIUM [Concomitant]
  4. ATENOLOL [Concomitant]
     Dosage: 25MG PER DAY
     Route: 048
  5. TRICOR [Concomitant]
  6. BUPROPION HCL [Concomitant]
     Dosage: 300MG PER DAY
     Route: 048

REACTIONS (1)
  - METRORRHAGIA [None]
